FAERS Safety Report 25089930 (Version 1)
Quarter: 2025Q1

REPORT INFORMATION
  Report Type: Spontaneous
  Country: US (occurrence: None)
  Receive Date: 20250317
  Receipt Date: 20250317
  Transmission Date: 20250409
  Serious: Yes (Hospitalization)
  Sender: FDA-CTU
  Company Number: None

PATIENT
  Age: 43 Year
  Sex: Female

DRUGS (1)
  1. RITUXIMAB-PVVR [Suspect]
     Active Substance: RITUXIMAB-PVVR
     Indication: Neuromyelitis optica spectrum disorder
     Dates: start: 20250227, end: 20250313

REACTIONS (6)
  - Chest discomfort [None]
  - Chest discomfort [None]
  - Dyspnoea [None]
  - Ear pruritus [None]
  - Blood pressure increased [None]
  - Limb discomfort [None]

NARRATIVE: CASE EVENT DATE: 20250313
